FAERS Safety Report 6342562-3 (Version None)
Quarter: 2009Q3

REPORT INFORMATION
  Report Type: 
  Country: None (occurrence: None)
  Receive Date: 20090908
  Receipt Date: 20051114
  Transmission Date: 20100115
  Serious: No
  Sender: FDA-Public Use
  Company Number: JP-ROCHE-425983

PATIENT
  Sex: Male
  Weight: 3.7 kg

DRUGS (6)
  1. OSELTAMIVIR [Suspect]
     Dates: start: 20050217, end: 20050219
  2. HERBAL EXTRACTS NOS [Concomitant]
     Dosage: DRUG REPORTED AS SHOUSEI RYUUTO (HERBAL MEDICINES).
     Dates: start: 20050215, end: 20050220
  3. LACTEC [Concomitant]
     Dates: start: 20050216
  4. ASCORBIC ACID [Concomitant]
     Dosage: DRUG REPORTED AS VITACIMIN.
     Dates: start: 20050216
  5. PRIMPERAN [Concomitant]
     Dates: start: 20050216
  6. METABOLIN [Concomitant]
     Dates: start: 20050216

REACTIONS (1)
  - NORMAL NEWBORN [None]
